FAERS Safety Report 7955040-2 (Version None)
Quarter: 2011Q4

REPORT INFORMATION
  Report Type: 
  Country: None (occurrence: None)
  Receive Date: 20111202
  Receipt Date: 20111128
  Transmission Date: 20120403
  Serious: Yes (Disabling, Other)
  Sender: FDA-Public Use
  Company Number: GB-PFIZER INC-2011290676

PATIENT
  Age: 52 Year
  Sex: Male
  Weight: 77 kg

DRUGS (3)
  1. SILDENAFIL CITRATE [Suspect]
     Dosage: UNK
     Dates: start: 20111122
  2. VIAGRA [Suspect]
     Indication: ERECTILE DYSFUNCTION
     Dosage: UNK
     Dates: start: 20111122
  3. SILDENAFIL [Concomitant]
     Dosage: UNK
     Dates: start: 20110901, end: 20110929

REACTIONS (1)
  - ANGIOEDEMA [None]
